FAERS Safety Report 15068252 (Version 1)
Quarter: 2018Q2

REPORT INFORMATION
  Report Type: Spontaneous
  Country: US (occurrence: US)
  Receive Date: 20180606
  Receipt Date: 20180606
  Transmission Date: 20180711
  Serious: Yes (Hospitalization, Other)
  Sender: FDA-Public Use
  Company Number: None

PATIENT
  Sex: Male
  Weight: 89.2 kg

DRUGS (11)
  1. OMEPRAZOLE. [Concomitant]
     Active Substance: OMEPRAZOLE
  2. CLINDAMYCIN. [Concomitant]
     Active Substance: CLINDAMYCIN
  3. GABAPENTIN. [Concomitant]
     Active Substance: GABAPENTIN
  4. TRAZODONE [Concomitant]
     Active Substance: TRAZODONE HYDROCHLORIDE
  5. RIBAVIRIN 200 MG VARIOUS [Suspect]
     Active Substance: RIBAVIRIN
     Indication: HEPATITIS C
     Route: 048
     Dates: start: 20170708, end: 20171025
  6. NICOTINE. [Concomitant]
     Active Substance: NICOTINE
  7. METFORMIN [Concomitant]
     Active Substance: METFORMIN HYDROCHLORIDE
  8. ZEPATIER [Suspect]
     Active Substance: ELBASVIR\GRAZOPREVIR
     Indication: HEPATITIS C
     Route: 048
     Dates: start: 20170708, end: 20171025
  9. TRAMADOL. [Concomitant]
     Active Substance: TRAMADOL
  10. LISINOPRIL. [Concomitant]
     Active Substance: LISINOPRIL
  11. DOXYCYCLINE. [Concomitant]
     Active Substance: DOXYCYCLINE

REACTIONS (5)
  - Pulmonary mass [None]
  - Bronchitis [None]
  - Neuroendocrine carcinoma [None]
  - Pulmonary function test abnormal [None]
  - Chest pain [None]

NARRATIVE: CASE EVENT DATE: 201709
